FAERS Safety Report 17686264 (Version 2)
Quarter: 2021Q2

REPORT INFORMATION
  Report Type: Spontaneous
  Country: CA (occurrence: CA)
  Receive Date: 20200420
  Receipt Date: 20210415
  Transmission Date: 20210716
  Serious: Yes (Death, Hospitalization, Other)
  Sender: FDA-Public Use
  Company Number: NVSC2020CA104938

PATIENT
  Age: 58 Year
  Sex: Male

DRUGS (7)
  1. SANDOSTATIN LAR DEPOT [Suspect]
     Active Substance: OCTREOTIDE ACETATE
  2. SUTENT [Suspect]
     Active Substance: SUNITINIB MALATE
     Dosage: 3 DF
     Route: 065
  3. AFINITOR [Suspect]
     Active Substance: EVEROLIMUS
     Indication: PANCREATIC NEUROENDOCRINE TUMOUR
     Dosage: 10 MG, QD
     Route: 048
  4. SUTENT [Suspect]
     Active Substance: SUNITINIB MALATE
     Indication: PANCREATIC NEUROENDOCRINE TUMOUR
     Dosage: UNK
     Route: 065
  5. LENVATINIB [Concomitant]
     Active Substance: LENVATINIB
     Indication: PRODUCT USED FOR UNKNOWN INDICATION
     Dosage: 3 DF, QD
     Route: 048
  6. SANDOSTATIN LAR DEPOT [Suspect]
     Active Substance: OCTREOTIDE ACETATE
  7. SANDOSTATIN LAR DEPOT [Suspect]
     Active Substance: OCTREOTIDE ACETATE
     Indication: PANCREATIC NEUROENDOCRINE TUMOUR
     Dosage: 60 MG, QMO
     Route: 030

REACTIONS (33)
  - Decreased appetite [Fatal]
  - Malaise [Fatal]
  - Alopecia [Fatal]
  - Constipation [Fatal]
  - Abdominal distension [Fatal]
  - Condition aggravated [Not Recovered/Not Resolved]
  - Pallor [Fatal]
  - Abdominal pain upper [Fatal]
  - Vomiting [Fatal]
  - General physical health deterioration [Fatal]
  - Neoplasm progression [Fatal]
  - Weight decreased [Fatal]
  - Peripheral swelling [Fatal]
  - Pyrexia [Fatal]
  - Arthralgia [Fatal]
  - Lymphadenopathy [Fatal]
  - Renal pain [Fatal]
  - Nephrolithiasis [Fatal]
  - Platelet count decreased [Fatal]
  - Off label use [Fatal]
  - Inappropriate schedule of product administration [Fatal]
  - Anaemia [Fatal]
  - Pulmonary fibrosis [Fatal]
  - Nausea [Fatal]
  - Flushing [Fatal]
  - Blood pressure increased [Fatal]
  - Hepatic lesion [Fatal]
  - Dyspepsia [Fatal]
  - Acne [Fatal]
  - Oedema peripheral [Fatal]
  - Abdominal pain [Fatal]
  - Diarrhoea [Fatal]
  - Ascites [Fatal]
